FAERS Safety Report 10349511 (Version 3)
Quarter: 2014Q4

REPORT INFORMATION
  Report Type: Spontaneous
  Country: DE (occurrence: DE)
  Receive Date: 20140730
  Receipt Date: 20141222
  Transmission Date: 20150528
  Serious: Yes (Other)
  Sender: FDA-Public Use
  Company Number: DE-ROCHE-1439666

PATIENT
  Age: 31 Year
  Sex: Female
  Weight: 76 kg

DRUGS (10)
  1. HERCEPTIN [Suspect]
     Active Substance: TRASTUZUMAB
     Dosage: INITIAL DOSE
     Route: 065
     Dates: start: 20140630, end: 20140630
  2. FENISTIL (GERMANY) [Concomitant]
     Indication: PREMEDICATION
     Route: 042
     Dates: start: 20140811
  3. PERJETA [Suspect]
     Active Substance: PERTUZUMAB
     Route: 042
     Dates: start: 20140721
  4. HERCEPTIN [Suspect]
     Active Substance: TRASTUZUMAB
     Route: 065
     Dates: start: 20140721
  5. DOCETAXEL. [Concomitant]
     Active Substance: DOCETAXEL
     Indication: BREAST CANCER METASTATIC
     Route: 065
     Dates: start: 20140630
  6. PERJETA [Suspect]
     Active Substance: PERTUZUMAB
     Indication: BREAST CANCER METASTATIC
     Dosage: INITIAL DOSE
     Route: 042
     Dates: start: 20140630, end: 20140630
  7. ZOMETA [Concomitant]
     Active Substance: ZOLEDRONIC ACID
     Route: 065
  8. HERCEPTIN [Suspect]
     Active Substance: TRASTUZUMAB
     Indication: BREAST CANCER METASTATIC
     Dosage: THERAPY FOR 12 MONTHS
     Route: 065
  9. RANITIDIN [Concomitant]
     Active Substance: RANITIDINE HYDROCHLORIDE
     Indication: PREMEDICATION
     Route: 042
     Dates: start: 20140811
  10. CORTISONE [Concomitant]
     Active Substance: CORTISONE\HYDROCORTISONE

REACTIONS (8)
  - Hypersensitivity [Recovered/Resolved]
  - Nausea [Recovered/Resolved]
  - Rash [Unknown]
  - Dyspnoea [Recovered/Resolved]
  - Cardiovascular disorder [Recovered/Resolved]
  - Chills [Unknown]
  - Flushing [Unknown]
  - Abdominal pain [Recovered/Resolved]

NARRATIVE: CASE EVENT DATE: 20140721
